FAERS Safety Report 7721581-6 (Version None)
Quarter: 2011Q3

REPORT INFORMATION
  Report Type: 
  Country: None (occurrence: None)
  Receive Date: 20110825
  Receipt Date: 20110809
  Transmission Date: 20111222
  Serious: Yes (Death, Life-Threatening, Hospitalization)
  Sender: FDA-Public Use
  Company Number: 2011MA011575

PATIENT
  Age: 26 Year
  Sex: Male

DRUGS (4)
  1. DIAZEPAM [Suspect]
     Indication: CONVULSION
     Dosage: 20 MG
  2. PHENYTOIN [Suspect]
     Indication: CONVULSION PROPHYLAXIS
  3. LIDOCAINE [Suspect]
  4. CARBAMAZEPINE [Suspect]
     Indication: CONVULSION PROPHYLAXIS
     Dosage: 200 MG;BID

REACTIONS (10)
  - CARDIAC ARREST [None]
  - BRAIN NEOPLASM [None]
  - DRUG ABUSE [None]
  - CYANOSIS [None]
  - ACIDOSIS [None]
  - MENINGITIS [None]
  - DIZZINESS [None]
  - STATUS EPILEPTICUS [None]
  - FALL [None]
  - UNRESPONSIVE TO STIMULI [None]
